FAERS Safety Report 23389139 (Version 1)
Quarter: 2024Q1

REPORT INFORMATION
  Report Type: Report from Study
  Country: US (occurrence: US)
  Receive Date: 20240110
  Receipt Date: 20240110
  Transmission Date: 20240410
  Serious: No
  Sender: FDA-Public Use
  Company Number: US-AstraZeneca-CH-00539565A

PATIENT
  Age: 79 Year
  Sex: Male

DRUGS (1)
  1. SOLIRIS [Suspect]
     Active Substance: ECULIZUMAB
     Indication: Myasthenia gravis
     Dosage: UNK
     Route: 042

REACTIONS (3)
  - COVID-19 [Unknown]
  - Therapeutic response shortened [Unknown]
  - Fatigue [Unknown]

NARRATIVE: CASE EVENT DATE: 20231101
